FAERS Safety Report 14478078 (Version 16)
Quarter: 2021Q1

REPORT INFORMATION
  Report Type: Other
  Country: CN (occurrence: CN)
  Receive Date: 20180202
  Receipt Date: 20210318
  Transmission Date: 20210419
  Serious: Yes (Hospitalization, Other)
  Sender: FDA-Public Use
  Company Number: CN-ROCHE-1809716

PATIENT
  Sex: Female
  Weight: 54 kg

DRUGS (4)
  1. AVASTIN [Suspect]
     Active Substance: BEVACIZUMAB
     Indication: COLORECTAL CANCER
     Route: 041
     Dates: start: 20160630, end: 20170711
  2. AVASTIN [Suspect]
     Active Substance: BEVACIZUMAB
     Route: 041
     Dates: start: 20190521
  3. AVASTIN [Suspect]
     Active Substance: BEVACIZUMAB
     Route: 041
  4. AVASTIN [Suspect]
     Active Substance: BEVACIZUMAB
     Route: 041
     Dates: start: 20160630

REACTIONS (33)
  - Liver injury [Unknown]
  - Aortic dissection [Unknown]
  - Asthenia [Unknown]
  - Urinary tract infection [Unknown]
  - Diarrhoea [Unknown]
  - Immunodeficiency [Unknown]
  - Drug intolerance [Unknown]
  - Lipids increased [Unknown]
  - Skin discolouration [Unknown]
  - Rhinorrhoea [Unknown]
  - Nasopharyngitis [Unknown]
  - Pyrexia [Unknown]
  - Hypertension [Unknown]
  - Pain in extremity [Unknown]
  - Platelet disorder [Unknown]
  - White blood cell count decreased [Unknown]
  - Blood bilirubin increased [Unknown]
  - Renal impairment [Unknown]
  - Cardiac dysfunction [Unknown]
  - Platelet count decreased [Unknown]
  - Depressed mood [Unknown]
  - Decreased appetite [Unknown]
  - Pneumonitis [Unknown]
  - Weight decreased [Unknown]
  - Mouth ulceration [Unknown]
  - Malnutrition [Unknown]
  - Anaemia [Unknown]
  - Alopecia [Unknown]
  - Hypersensitivity [Unknown]
  - Cardiac discomfort [Unknown]
  - Palmar-plantar erythrodysaesthesia syndrome [Unknown]
  - Discomfort [Unknown]
  - Labile blood pressure [Unknown]

NARRATIVE: CASE EVENT DATE: 20190324
